FAERS Safety Report 7917932-X (Version None)
Quarter: 2011Q4

REPORT INFORMATION
  Report Type: 
  Country: None (occurrence: None)
  Receive Date: 20111116
  Receipt Date: 20111111
  Transmission Date: 20120403
  Serious: Yes (Hospitalization, Other)
  Sender: FDA-Public Use
  Company Number: PHHY2011US55719

PATIENT
  Age: 21 Year
  Sex: Male
  Weight: 69.388 kg

DRUGS (1)
  1. TOBI [Suspect]
     Indication: CYSTIC FIBROSIS
     Dosage: 300 MG, TWICE DAILY FOR 28 DAYS EVERY OTHER MONTH
     Dates: start: 20100729

REACTIONS (4)
  - NASOPHARYNGITIS [None]
  - UPPER RESPIRATORY TRACT INFECTION [None]
  - URINARY TRACT INFECTION [None]
  - PNEUMONIA [None]
